FAERS Safety Report 12206110 (Version 1)
Quarter: 2016Q1

REPORT INFORMATION
  Report Type: Report from Study
  Country: CN (occurrence: CN)
  Receive Date: 20160324
  Receipt Date: 20160324
  Transmission Date: 20160526
  Serious: Yes (Other)
  Sender: FDA-Public Use
  Company Number: CN-ROCHE-1703655

PATIENT
  Sex: Female
  Weight: 51 kg

DRUGS (1)
  1. AVASTIN [Suspect]
     Active Substance: BEVACIZUMAB
     Indication: RECTAL CANCER
     Route: 041
     Dates: start: 20150831, end: 20160225

REACTIONS (3)
  - Fatigue [Recovering/Resolving]
  - Intestinal obstruction [Unknown]
  - Constipation [Recovering/Resolving]
